FAERS Safety Report 18604300 (Version 2)
Quarter: 2021Q1

REPORT INFORMATION
  Report Type: Report from Study
  Country: US (occurrence: US)
  Receive Date: 20201211
  Receipt Date: 20210302
  Transmission Date: 20210419
  Serious: No
  Sender: FDA-Public Use
  Company Number: US-ACADIA PHARMACEUTICALS INC.-ACA-2020-PIM-003702

PATIENT
  Age: 68 Year
  Sex: Female

DRUGS (1)
  1. NUPLAZID [Suspect]
     Active Substance: PIMAVANSERIN TARTRATE
     Indication: PARKINSON^S DISEASE
     Dosage: 34 MILLIGRAM, QD
     Route: 048
     Dates: start: 20200414

REACTIONS (5)
  - Therapeutic product effect decreased [Unknown]
  - Hallucination, visual [Unknown]
  - Nail discolouration [Unknown]
  - Pruritus [Unknown]
  - Onychoclasis [Unknown]

NARRATIVE: CASE EVENT DATE: 202004
